FAERS Safety Report 20993756 (Version 1)
Quarter: 2022Q2

REPORT INFORMATION
  Report Type: Spontaneous
  Country: None (occurrence: KR)
  Receive Date: 20220622
  Receipt Date: 20220622
  Transmission Date: 20220721
  Serious: Yes (Hospitalization, Other)
  Sender: FDA-Public Use
  Company Number: KR-Avion Pharmaceuticals, LLC-2130163

PATIENT
  Age: 57 Year
  Sex: Female

DRUGS (4)
  1. DHIVY [Suspect]
     Active Substance: CARBIDOPA\LEVODOPA
     Indication: Product used for unknown indication
     Route: 065
  2. AMANTADINE HYDROCHLORIDE [Suspect]
     Active Substance: AMANTADINE HYDROCHLORIDE
     Route: 065
  3. DIAZEPAM [Suspect]
     Active Substance: DIAZEPAM
     Route: 065
  4. BROMOCRIPTINE MESYLATE [Suspect]
     Active Substance: BROMOCRIPTINE MESYLATE
     Route: 065

REACTIONS (6)
  - Haemorrhage intracranial [Unknown]
  - Intraventricular haemorrhage [Unknown]
  - Pyrexia [Recovering/Resolving]
  - Muscle rigidity [Recovering/Resolving]
  - Mental impairment [Recovering/Resolving]
  - Tachycardia [Unknown]
